FAERS Safety Report 9193939 (Version 2)
Quarter: 2013Q2

REPORT INFORMATION
  Report Type: Spontaneous
  Country: US (occurrence: None)
  Receive Date: 20120703
  Receipt Date: 20121031
  Transmission Date: 20140414
  Serious: No
  Sender: FDA-Public Use
  Company Number: PHEH2012US010142

PATIENT
  Age: 39 Year
  Sex: Male

DRUGS (1)
  1. GILENYA (FTY) CAPSULE, 0.5MG [Suspect]
     Indication: MULTIPLE SCLEROSIS
     Route: 048
     Dates: start: 20120514

REACTIONS (6)
  - Abdominal discomfort [None]
  - Feeling abnormal [None]
  - Chest pain [None]
  - Headache [None]
  - Eye pain [None]
  - Fatigue [None]
